FAERS Safety Report 22217196 (Version 1)
Quarter: 2023Q2

REPORT INFORMATION
  Report Type: Report from Study
  Country: US (occurrence: US)
  Receive Date: 20230417
  Receipt Date: 20230417
  Transmission Date: 20230722
  Serious: Yes (Hospitalization, Other)
  Sender: FDA-Public Use
  Company Number: US-GILEAD-2023-0624492

PATIENT
  Sex: Female

DRUGS (1)
  1. AZTREONAM LYSINE [Suspect]
     Active Substance: AZTREONAM LYSINE
     Indication: Lung transplant
     Dosage: 75 MG, TID (INHALE 75 MG THREE TIMES DAILY, 28 DAYS ON AND 28 DAYS OFF  )
     Route: 055

REACTIONS (2)
  - Lung transplant [Unknown]
  - Off label use [Unknown]
